FAERS Safety Report 5612106-X (Version None)
Quarter: 2008Q1

REPORT INFORMATION
  Report Type: 
  Country: None (occurrence: None)
  Receive Date: 20080128
  Receipt Date: 20080115
  Transmission Date: 20080703
  Serious: Yes (Life-Threatening)
  Sender: FDA-Public Use
  Company Number: 2008AL000402

PATIENT
  Age: 45 Year
  Sex: Male

DRUGS (4)
  1. DICLOFENAC SODIUM [Suspect]
     Dosage: PO
     Route: 048
     Dates: start: 20071210
  2. WARFAROM [Concomitant]
  3. BECLOMETHASONE DIPROPIONATE [Concomitant]
  4. ALBUTEROL [Concomitant]

REACTIONS (2)
  - DRUG INTERACTION [None]
  - INTERNATIONAL NORMALISED RATIO INCREASED [None]
